FAERS Safety Report 8056146 (Version 3)
Quarter: 2013Q4

REPORT INFORMATION
  Report Type: Spontaneous
  Country: US (occurrence: US)
  Receive Date: 20110727
  Receipt Date: 20131226
  Transmission Date: 20140711
  Serious: Yes (Other)
  Sender: FDA-Public Use
  Company Number: US-BAYER-2011-064064

PATIENT
  Age: 41 Year
  Sex: Female

DRUGS (10)
  1. YAZ [Suspect]
     Dosage: UNK
  2. TRAMADOL [Concomitant]
     Dosage: 50 MG, UNK
  3. SOTRET [Concomitant]
     Dosage: 40 MG, UNK
  4. LEVSIN [Concomitant]
     Dosage: 0.125 MG, UNK
  5. OXYCODONE/APAP [Concomitant]
     Dosage: 5-325 MG
  6. ONDANSETRON [Concomitant]
     Dosage: 4 MG, UNK
  7. LOTREL [Concomitant]
     Dosage: 10/40 MG
  8. HYDROCHLOROTHIAZIDE [Concomitant]
     Dosage: 50 MG, UNK
  9. NEXIUM [Concomitant]
     Dosage: 40 MG, UNK
  10. ACCUTANE [Concomitant]

REACTIONS (8)
  - Cholelithiasis [None]
  - Cholecystitis chronic [Recovered/Resolved]
  - Gastrointestinal disorder [None]
  - Colitis [None]
  - Pain [None]
  - Anxiety [None]
  - Anhedonia [None]
  - Injury [None]
